FAERS Safety Report 20381361 (Version 1)
Quarter: 2022Q1

REPORT INFORMATION
  Report Type: Spontaneous
  Country: US (occurrence: US)
  Receive Date: 20220127
  Receipt Date: 20220127
  Transmission Date: 20220423
  Serious: No
  Sender: FDA-Public Use
  Company Number: US-ELI_LILLY_AND_COMPANY-US202201007469

PATIENT
  Sex: Female

DRUGS (1)
  1. BASAGLAR [Suspect]
     Active Substance: INSULIN GLARGINE
     Indication: Diabetes mellitus
     Dosage: 80 U, EACH MORNING
     Route: 058
     Dates: start: 2020

REACTIONS (5)
  - Hypoaesthesia [Unknown]
  - Memory impairment [Unknown]
  - Visual impairment [Unknown]
  - Gait disturbance [Unknown]
  - Pain in extremity [Unknown]
